FAERS Safety Report 17933506 (Version 1)
Quarter: 2020Q2

REPORT INFORMATION
  Report Type: Spontaneous
  Country: US (occurrence: US)
  Receive Date: 20200624
  Receipt Date: 20200624
  Transmission Date: 20200714
  Serious: No
  Sender: FDA-Public Use
  Company Number: US-AUROBINDO-AUR-APL-2020-005513

PATIENT

DRUGS (1)
  1. ZOLPIDEM TARTRATE TABLETS 5 MG [Suspect]
     Active Substance: ZOLPIDEM TARTRATE
     Indication: SLEEP DISORDER
     Dosage: 1 TO 2 TABLETS AT BED TIME AS NEEDED
     Route: 048
     Dates: start: 20190925

REACTIONS (2)
  - Product size issue [Unknown]
  - Intentional product use issue [Unknown]
